FAERS Safety Report 26186453 (Version 1)
Quarter: 2025Q4

REPORT INFORMATION
  Report Type: Spontaneous
  Country: US (occurrence: None)
  Receive Date: 20251219
  Receipt Date: 20251219
  Transmission Date: 20260118
  Serious: Yes (Hospitalization)
  Sender: FDA-CTU
  Company Number: None

PATIENT
  Age: 65 Year
  Sex: Female
  Weight: 70 kg

DRUGS (2)
  1. TOPAMAX [Suspect]
     Active Substance: TOPIRAMATE
     Indication: Parkinsonism
     Dosage: FREQUENCY : AT BEDTIME;
     Route: 048
     Dates: start: 20250805, end: 20250806
  2. TOPAMAX [Suspect]
     Active Substance: TOPIRAMATE
     Indication: Tardive dyskinesia
     Dosage: 100 MG HS PO
     Dates: start: 20250805, end: 20250806

REACTIONS (3)
  - Fall [None]
  - Asthenia [None]
  - Rhabdomyolysis [None]

NARRATIVE: CASE EVENT DATE: 20250806
